FAERS Safety Report 16773332 (Version 1)
Quarter: 2019Q3

REPORT INFORMATION
  Report Type: Spontaneous
  Country: US (occurrence: US)
  Receive Date: 20190904
  Receipt Date: 20190904
  Transmission Date: 20191005
  Serious: No
  Sender: FDA-Public Use
  Company Number: US-PURDUE-USA-2018-0145144

PATIENT
  Sex: Female

DRUGS (1)
  1. OXYCODONE/ ACETAMINOPHEN TABLETS [Suspect]
     Active Substance: ACETAMINOPHEN\OXYCODONE HYDROCHLORIDE
     Indication: PAIN
     Dosage: 7.5/325MG, Q6H PRN
     Route: 048
     Dates: start: 201810

REACTIONS (3)
  - Inadequate analgesia [Not Recovered/Not Resolved]
  - Tinnitus [Not Recovered/Not Resolved]
  - Product physical issue [Not Recovered/Not Resolved]
